FAERS Safety Report 10721376 (Version 1)
Quarter: 2015Q1

REPORT INFORMATION
  Report Type: Spontaneous
  Country: DK (occurrence: DK)
  Receive Date: 20150119
  Receipt Date: 20150119
  Transmission Date: 20150721
  Serious: Yes (Hospitalization)
  Sender: FDA-Public Use
  Company Number: DK-ABBVIE-15P-044-1334299-00

PATIENT
  Sex: Male

DRUGS (3)
  1. ODRIK (ABBOTT) [Suspect]
     Active Substance: TRANDOLAPRIL
     Indication: PRODUCT USED FOR UNKNOWN INDICATION
     Route: 065
  2. TRAMADOL [Concomitant]
     Active Substance: TRAMADOL
     Indication: NEURALGIA
     Dates: start: 201208
  3. GABAPENTIN ORIFARM [Concomitant]
     Active Substance: GABAPENTIN
     Indication: NEURALGIA
     Dates: start: 20120813, end: 20140201

REACTIONS (19)
  - Food allergy [Recovering/Resolving]
  - Pain of skin [Recovering/Resolving]
  - Paraesthesia [Recovering/Resolving]
  - Oropharyngeal pain [Recovering/Resolving]
  - Suicidal ideation [Recovering/Resolving]
  - Dysgeusia [Recovering/Resolving]
  - Urticaria [Recovering/Resolving]
  - Genital hypoaesthesia [Recovering/Resolving]
  - Anal paraesthesia [Recovering/Resolving]
  - Hypoaesthesia [Recovering/Resolving]
  - Paraesthesia oral [Recovering/Resolving]
  - Oral pain [Recovering/Resolving]
  - Muscle spasms [Recovering/Resolving]
  - Angioedema [Recovering/Resolving]
  - Testicular pain [Recovering/Resolving]
  - Sensory disturbance [Recovering/Resolving]
  - Drug hypersensitivity [Recovering/Resolving]
  - Toothache [Recovering/Resolving]
  - Hypoaesthesia oral [Recovering/Resolving]

NARRATIVE: CASE EVENT DATE: 2013
